FAERS Safety Report 19869317 (Version 2)
Quarter: 2021Q3

REPORT INFORMATION
  Report Type: Spontaneous
  Country: CY (occurrence: CY)
  Receive Date: 20210922
  Receipt Date: 20210930
  Transmission Date: 20211014
  Serious: Yes (Other)
  Sender: FDA-Public Use
  Company Number: CY-PERRIGO-21CY028314

PATIENT
  Age: 30 Year
  Sex: Female
  Weight: 70 kg

DRUGS (4)
  1. CLINDAMYCIN PALMITATE HYDROCHLORIDE. [Suspect]
     Active Substance: CLINDAMYCIN PALMITATE HYDROCHLORIDE
     Indication: EOSINOPHILIC CELLULITIS
     Dosage: 300 MG EVERY 6 HOURS, PRN
     Route: 048
  2. CIPROFLOXACIN. [Suspect]
     Active Substance: CIPROFLOXACIN
     Indication: EOSINOPHILIC CELLULITIS
     Dosage: 500 MG EVERY 12 HOURS
     Route: 048
     Dates: start: 201901, end: 2019
  3. PREDNISONE. [Concomitant]
     Active Substance: PREDNISONE
     Dates: start: 201901
  4. PREDNISONE. [Concomitant]
     Active Substance: PREDNISONE
     Indication: EOSINOPHILIC CELLULITIS
     Dosage: SLOWLY TAPERED OFF
     Dates: start: 2019

REACTIONS (1)
  - Clostridium difficile infection [Recovered/Resolved]
